FAERS Safety Report 8354982-6 (Version None)
Quarter: 2012Q2

REPORT INFORMATION
  Report Type: 
  Country: None (occurrence: None)
  Receive Date: 20120511
  Receipt Date: 20120508
  Transmission Date: 20120825
  Serious: Yes (Life-Threatening, Hospitalization, Disabling, Congenital Anomaly)
  Sender: FDA-Public Use
  Company Number: DE-JNJFOC-20120507247

PATIENT
  Sex: Male
  Weight: 2.44 kg

DRUGS (6)
  1. FUNGIZID [Suspect]
     Indication: FOETAL EXPOSURE DURING PREGNANCY
     Route: 064
  2. CEFUROXIME [Suspect]
     Route: 064
  3. CEFUROXIME [Suspect]
     Route: 064
  4. CEFUROXIME [Suspect]
     Indication: FOETAL EXPOSURE DURING PREGNANCY
     Route: 064
  5. TOPAMAX [Suspect]
     Indication: FOETAL EXPOSURE DURING PREGNANCY
     Route: 064
     Dates: start: 20110330, end: 20111123
  6. CEFUROXIME [Suspect]
     Route: 064

REACTIONS (2)
  - CONGENITAL CHOROID PLEXUS CYST [None]
  - HYPOPLASTIC LEFT HEART SYNDROME [None]
